FAERS Safety Report 5743529-6 (Version None)
Quarter: 2008Q2

REPORT INFORMATION
  Report Type: 
  Country: None (occurrence: None)
  Receive Date: 20080516
  Receipt Date: 20080425
  Transmission Date: 20081010
  Serious: Yes (Disabling)
  Sender: FDA-Public Use
  Company Number: GXKR2008GB04291

PATIENT
  Age: 53 Year
  Sex: Male
  Weight: 80 kg

DRUGS (4)
  1. SIMVASTATIN [Suspect]
     Indication: MYOCARDIAL ISCHAEMIA
     Dosage: 40 MG, ORAL
     Route: 048
     Dates: start: 20080218, end: 20080301
  2. ACETYLSALICYLIC ACID SRT [Concomitant]
  3. SYNALAR (FLUOCINOLONE ACETONIDE) [Concomitant]
  4. VIAZEM XL (DILTIAZEM HYDROCHLORIDE) [Concomitant]

REACTIONS (2)
  - CONDITION AGGRAVATED [None]
  - PSORIASIS [None]
